FAERS Safety Report 24445935 (Version 2)
Quarter: 2024Q4

REPORT INFORMATION
  Report Type: Spontaneous
  Country: US (occurrence: US)
  Receive Date: 20241016
  Receipt Date: 20241022
  Transmission Date: 20250114
  Serious: No
  Sender: BAYER HEALTHCARE PHARMACEUTICALS INC.
  Company Number: US-BAYER-2024A146563

PATIENT
  Age: 56 Year
  Sex: Female

DRUGS (2)
  1. MENOSTAR [Suspect]
     Active Substance: ESTRADIOL
     Indication: Hormone replacement therapy
     Route: 062
  2. MENOSTAR [Suspect]
     Active Substance: ESTRADIOL
     Indication: Menopausal symptoms

REACTIONS (3)
  - Application site erythema [None]
  - Device adhesion issue [None]
  - Wrong technique in product usage process [None]
